FAERS Safety Report 20878986 (Version 2)
Quarter: 2023Q2

REPORT INFORMATION
  Report Type: Spontaneous
  Country: US (occurrence: US)
  Receive Date: 20220526
  Receipt Date: 20230516
  Transmission Date: 20230722
  Serious: No
  Sender: FDA-Public Use
  Company Number: US-RADIUS HEALTH INC.-2021US005191

PATIENT
  Age: 54 Year
  Sex: Female

DRUGS (2)
  1. TYMLOS [Suspect]
     Active Substance: ABALOPARATIDE
     Indication: Osteoporosis
     Dosage: 80 MICROGRAM, QD
     Route: 065
     Dates: start: 202107
  2. TYMLOS [Suspect]
     Active Substance: ABALOPARATIDE
     Dosage: 80 MICROGRAM, QD
     Route: 065
     Dates: start: 202201

REACTIONS (10)
  - Contusion [Not Recovered/Not Resolved]
  - Flank pain [Unknown]
  - Back pain [Unknown]
  - Palpitations [Unknown]
  - Heart rate increased [Unknown]
  - Headache [Unknown]
  - Dizziness [Unknown]
  - Injection site bruising [Unknown]
  - Intentional product misuse [Unknown]
  - Product quality issue [Unknown]

NARRATIVE: CASE EVENT DATE: 20211101
